FAERS Safety Report 7377681-6 (Version None)
Quarter: 2011Q1

REPORT INFORMATION
  Report Type: 
  Country: None (occurrence: None)
  Receive Date: 20110328
  Receipt Date: 20110324
  Transmission Date: 20110831
  Serious: Yes (Death, Hospitalization)
  Sender: FDA-Public Use
  Company Number: FR-B.I. PHARMACEUTICALS,INC./RIDGEFIELD-2011-FF-00160FF

PATIENT
  Sex: Male
  Weight: 65 kg

DRUGS (8)
  1. NITRODERM [Concomitant]
  2. LASIX [Concomitant]
     Route: 048
  3. CARDENSIEL [Concomitant]
     Dosage: 2.5 MG
  4. ASPEGIC 325 [Concomitant]
     Dosage: 100 MG
     Route: 048
  5. INIPOMP [Concomitant]
     Route: 048
  6. BECOTIDE [Concomitant]
     Dosage: AS REQUESTED
  7. TRIATEC [Concomitant]
     Dosage: 2.5 MG
  8. SPIRIVA [Suspect]
     Route: 055

REACTIONS (5)
  - URINARY RETENTION [None]
  - PROSTATIC ADENOMA [None]
  - ISCHAEMIC STROKE [None]
  - CARDIAC FAILURE [None]
  - BLADDER STENOSIS [None]
